FAERS Safety Report 6135161-X (Version None)
Quarter: 2009Q1

REPORT INFORMATION
  Report Type: 
  Country: None (occurrence: None)
  Receive Date: 20090325
  Receipt Date: 20090308
  Transmission Date: 20090719
  Serious: Yes (Hospitalization)
  Sender: FDA-Public Use
  Company Number: 2006S1001874

PATIENT
  Age: 80 Year
  Sex: Female
  Weight: 70.3075 kg

DRUGS (24)
  1. PHOSPHOSODA FLAVOR NOT SPECIFIED [Suspect]
     Indication: COLONOSCOPY
     Dosage: 135 ML;TOTAL;PO
     Route: 048
     Dates: start: 20050322, end: 20050322
  2. TOPROL-XL [Concomitant]
  3. ACCUPRIL [Concomitant]
  4. DIOVAN HCT [Concomitant]
  5. SYNTHROID [Concomitant]
  6. GLUCOSAMINE/CHONDROITIN [Concomitant]
  7. BEXTRA [Concomitant]
  8. PREVACID [Concomitant]
  9. NEXIUM [Concomitant]
  10. MOBIC [Concomitant]
  11. NEURONTIN [Concomitant]
  12. MAXZIDE [Concomitant]
  13. LEVOXYL [Concomitant]
  14. BIAXIN [Concomitant]
  15. ANTIVERT [Concomitant]
  16. ACIPHEX [Concomitant]
  17. PREMARIN [Concomitant]
  18. PRAVACHOL [Concomitant]
  19. VIOXX [Concomitant]
  20. CALTRATE 600 + D [Concomitant]
  21. MULTI-VITAMINS [Concomitant]
  22. LOVAZA [Concomitant]
  23. ASPIRIN [Concomitant]
  24. MAGNESIUM CITRATE [Concomitant]

REACTIONS (17)
  - ACTIVITIES OF DAILY LIVING IMPAIRED [None]
  - ASTHENIA [None]
  - DEHYDRATION [None]
  - DIARRHOEA [None]
  - DYSGEUSIA [None]
  - DYSPNOEA [None]
  - DYSPNOEA EXERTIONAL [None]
  - FACIAL PAIN [None]
  - FATIGUE [None]
  - HYPERTENSIVE HEART DISEASE [None]
  - HYPOTHYROIDISM [None]
  - HYPOVOLAEMIA [None]
  - NAUSEA [None]
  - PALPITATIONS [None]
  - RENAL FAILURE ACUTE [None]
  - RENAL FAILURE CHRONIC [None]
  - SLUGGISHNESS [None]
